FAERS Safety Report 23296446 (Version 1)
Quarter: 2023Q4

REPORT INFORMATION
  Report Type: Spontaneous
  Country: MX (occurrence: None)
  Receive Date: 20231214
  Receipt Date: 20231214
  Transmission Date: 20240110
  Serious: Yes (Other)
  Sender: FDA-Public Use
  Company Number: MX-ROCHE-3472011

PATIENT
  Sex: Female
  Weight: 62.4 kg

DRUGS (3)
  1. TRASTUZUMAB [Suspect]
     Active Substance: TRASTUZUMAB
     Indication: Breast cancer
     Dosage: DOSE AND FREQUENCY WERE NOT REPORTED
     Route: 041
  2. PERTUZUMAB [Suspect]
     Active Substance: PERTUZUMAB
     Indication: Breast cancer
     Dosage: DOSE AND FREQUENCY WERE NOT REPORTED
     Route: 065
  3. DOCETAXEL [Concomitant]
     Active Substance: DOCETAXEL\DOCETAXEL ANHYDROUS

REACTIONS (7)
  - Lymphatic system neoplasm [Unknown]
  - Leukopenia [Unknown]
  - Ejection fraction [Unknown]
  - Hepatic steatosis [Unknown]
  - Urinary bladder polyp [Unknown]
  - Metastases to lymph nodes [Unknown]
  - Fibrocystic breast disease [Unknown]
